FAERS Safety Report 7547286-2 (Version None)
Quarter: 2011Q2

REPORT INFORMATION
  Report Type: 
  Country: None (occurrence: None)
  Receive Date: 20110614
  Receipt Date: 20110602
  Transmission Date: 20111010
  Serious: Yes (Death, Other)
  Sender: FDA-Public Use
  Company Number: US-BAXTER-2011BH018518

PATIENT
  Age: 16 Year
  Sex: Female

DRUGS (16)
  1. DOXORUBICIN HCL [Suspect]
     Indication: BONE SARCOMA
     Route: 065
     Dates: start: 19901001
  2. ETOPOSIDE [Suspect]
     Route: 065
     Dates: start: 20030101
  3. FILGRASTIM [Concomitant]
     Indication: PRODUCT USED FOR UNKNOWN INDICATION
     Route: 065
     Dates: start: 20060701
  4. MELPHALAN HYDROCHLORIDE [Concomitant]
     Indication: MYELODYSPLASTIC SYNDROME
     Route: 065
  5. IFOSFAMIDE [Suspect]
     Route: 065
     Dates: start: 20040101
  6. THALIDOMIDE [Suspect]
     Indication: ANAEMIA
     Route: 065
  7. SARGRAMOSTIM [Concomitant]
     Indication: PRODUCT USED FOR UNKNOWN INDICATION
     Route: 065
  8. IFOSFAMIDE [Suspect]
     Indication: BONE SARCOMA
     Route: 065
     Dates: start: 19900101
  9. TACROLIMUS [Concomitant]
     Indication: PROPHYLAXIS AGAINST GRAFT VERSUS HOST DISEASE
     Route: 065
  10. METHOTREXATE [Suspect]
     Indication: BONE SARCOMA
     Route: 065
     Dates: start: 19901001
  11. ETOPOSIDE [Suspect]
     Indication: BONE SARCOMA
     Route: 065
     Dates: start: 20040101
  12. CAMPATH [Concomitant]
     Indication: MYELODYSPLASTIC SYNDROME
     Route: 065
  13. IFOSFAMIDE [Suspect]
     Route: 065
     Dates: start: 20030101
  14. IFN ALPHA [Concomitant]
     Indication: PRODUCT USED FOR UNKNOWN INDICATION
     Route: 065
  15. DECITABINE [Concomitant]
     Indication: MYELODYSPLASTIC SYNDROME
     Route: 065
  16. FLUDARABINE PHOSPHATE [Concomitant]
     Indication: MYELODYSPLASTIC SYNDROME
     Route: 065

REACTIONS (4)
  - MYELODYSPLASTIC SYNDROME [None]
  - MUCOSAL INFLAMMATION [None]
  - ACUTE MYELOID LEUKAEMIA [None]
  - THROMBOCYTOPENIA [None]
